FAERS Safety Report 4923363-7 (Version None)
Quarter: 2006Q1

REPORT INFORMATION
  Report Type: 
  Country: None (occurrence: None)
  Receive Date: 20060227
  Receipt Date: 20060215
  Transmission Date: 20060701
  Serious: Yes (Hospitalization)
  Sender: FDA-Public Use
  Company Number: DO-BRISTOL-MYERS SQUIBB COMPANY-13286760

PATIENT
  Age: 27 Year
  Sex: Female
  Weight: 59 kg

DRUGS (1)
  1. TAXOL [Suspect]
     Indication: OVARIAN EPITHELIAL CANCER
     Route: 042

REACTIONS (3)
  - CHEST PAIN [None]
  - SENSE OF OPPRESSION [None]
  - VISION BLURRED [None]
